FAERS Safety Report 17306736 (Version 9)
Quarter: 2021Q1

REPORT INFORMATION
  Report Type: Report from Study
  Country: US (occurrence: US)
  Receive Date: 20200123
  Receipt Date: 20210223
  Transmission Date: 20210419
  Serious: Yes (Life-Threatening, Hospitalization, Other)
  Sender: FDA-Public Use
  Company Number: NVSC2020US015670

PATIENT
  Age: 19 Year
  Sex: Male

DRUGS (16)
  1. INC424A [Suspect]
     Active Substance: RUXOLITINIB
     Dosage: 110 MG, BID
     Route: 048
     Dates: start: 20191126
  2. METHOTREXATE SODIUM. [Suspect]
     Active Substance: METHOTREXATE SODIUM
     Dosage: 220 MILLIGRAM/PROTOCOL
     Route: 042
     Dates: start: 20191126
  3. HYDROXYZINE [Concomitant]
     Active Substance: HYDROXYZINE HYDROCHLORIDE
     Indication: VOMITING
     Dosage: UNK
     Route: 065
  4. INC424A [Suspect]
     Active Substance: RUXOLITINIB
     Indication: B PRECURSOR TYPE ACUTE LEUKAEMIA
     Dosage: 110 MG, BID
     Route: 048
     Dates: start: 20190218, end: 20191027
  5. INC424A [Suspect]
     Active Substance: RUXOLITINIB
     Dosage: 110 MG, BID
     Route: 048
     Dates: start: 20191029, end: 20191118
  6. PEGASPARGASE [Suspect]
     Active Substance: PEGASPARGASE
     Dosage: 220 MG/PROTOCOL
     Route: 042
     Dates: start: 20191029, end: 20191118
  7. HYDROXYZINE [Concomitant]
     Active Substance: HYDROXYZINE HYDROCHLORIDE
     Indication: NAUSEA
     Dosage: 25 MG, PRN
     Route: 048
     Dates: start: 20190218
  8. MOTRIN [Concomitant]
     Active Substance: IBUPROFEN
     Indication: BACK PAIN
     Dosage: 600 MG (ONE DOSE)
     Route: 048
     Dates: start: 20190316
  9. VINCRISTINE [Suspect]
     Active Substance: VINCRISTINE
     Dosage: 220 MILLIGRAM/PROTOCOL
     Route: 042
     Dates: start: 20191029, end: 20191118
  10. PEGASPARGASE [Suspect]
     Active Substance: PEGASPARGASE
     Dosage: 220 MG/PROTOCOL
     Route: 042
     Dates: start: 20191126
  11. BACTRIM DS [Concomitant]
     Active Substance: SULFAMETHOXAZOLE\TRIMETHOPRIM
     Indication: ANTIFUNGAL PROPHYLAXIS
     Dosage: 800/160 MG BID
     Route: 048
     Dates: start: 20200316
  12. METHOTREXATE SODIUM. [Suspect]
     Active Substance: METHOTREXATE SODIUM
     Dosage: 220 MILLIGRAM/PROTOCOL
     Route: 042
     Dates: start: 20191029, end: 20191118
  13. VINCRISTINE [Suspect]
     Active Substance: VINCRISTINE
     Indication: B PRECURSOR TYPE ACUTE LEUKAEMIA
     Dosage: 220 MILLIGRAM/PROTOCOL
     Route: 042
     Dates: start: 20190218, end: 20191027
  14. VINCRISTINE [Suspect]
     Active Substance: VINCRISTINE
     Dosage: 220 MILLIGRAM/PROTOCOL
     Route: 042
     Dates: start: 20191126
  15. METHOTREXATE SODIUM. [Suspect]
     Active Substance: METHOTREXATE SODIUM
     Indication: B PRECURSOR TYPE ACUTE LEUKAEMIA
     Dosage: 220 MILLIGRAM/PROTOCOL
     Route: 042
     Dates: start: 20190218, end: 20191027
  16. PEGASPARGASE [Suspect]
     Active Substance: PEGASPARGASE
     Indication: B PRECURSOR TYPE ACUTE LEUKAEMIA
     Dosage: 220 MG/PROTOCOL
     Route: 042
     Dates: start: 20190218, end: 20191027

REACTIONS (6)
  - Iron overload [Recovering/Resolving]
  - Colitis [Recovered/Resolved]
  - Hepatic steatosis [Recovering/Resolving]
  - Gamma-glutamyltransferase increased [Recovering/Resolving]
  - Pyrexia [Recovered/Resolved]
  - Pyrexia [Recovered/Resolved]

NARRATIVE: CASE EVENT DATE: 20191027
